FAERS Safety Report 8247453-9 (Version None)
Quarter: 2012Q1

REPORT INFORMATION
  Report Type: 
  Country: None (occurrence: None)
  Receive Date: 20120327
  Receipt Date: 20120314
  Transmission Date: 20120608
  Serious: Yes (Life-Threatening, Hospitalization)
  Sender: FDA-Public Use
  Company Number: AUR-APL-2012-01423

PATIENT
  Age: 62 Year
  Sex: Female

DRUGS (15)
  1. LISINOPRIL [Suspect]
     Indication: HYPERTENSION
     Dosage: 5 MG (5 MG,  1 IN 1 D),ORAL
     Route: 048
     Dates: start: 20100806, end: 20120229
  2. SODIUM ALGINATE (SODIUM ALGINATE) [Concomitant]
  3. CITALOPRAM HYDROBROMIDE [Concomitant]
  4. DOCUSATE SODIUM (DOCUSATE SODIUM) [Concomitant]
  5. ACETAMINOPHEN [Concomitant]
  6. CYCLIZINE (CYCLIZINE) [Concomitant]
  7. METOCLOPRAMIDE [Concomitant]
  8. OMEPRAZOLE [Concomitant]
  9. MORPHINE SULFATE [Concomitant]
  10. LEVOTHYROXINE SODIUM [Concomitant]
  11. SERETIDE (SERETIDE /01420901/1 [Concomitant]
  12. GLICLAZIDE (GLICLAZIDE) [Concomitant]
  13. PRAVASTATIN [Concomitant]
  14. ALBUTEROL SULFATE [Concomitant]
  15. TIOTROPIUM BROMIDE (TIOTROPIUM BROMIDE) [Concomitant]

REACTIONS (5)
  - DYSPNOEA [None]
  - WHEEZING [None]
  - SWOLLEN TONGUE [None]
  - ANGIOEDEMA [None]
  - PALLOR [None]
